FAERS Safety Report 8954554 (Version 1)
Quarter: 2012Q4

REPORT INFORMATION
  Report Type: Spontaneous
  Country: US (occurrence: None)
  Receive Date: 20121205
  Receipt Date: 20121205
  Transmission Date: 20130627
  Serious: Yes (Other)
  Sender: FDA-Public Use
  Company Number: None

PATIENT
  Age: 30 Year
  Sex: Male
  Weight: 74.84 kg

DRUGS (1)
  1. GRIFULVIN V [Suspect]
     Indication: INFECTED INGROWING TOE NAIL
     Dosage: One 500mg. daily oral
     Route: 048
     Dates: start: 20120118, end: 20120914

REACTIONS (5)
  - Confusional state [None]
  - Fatigue [None]
  - Agitation [None]
  - Activities of daily living impaired [None]
  - Memory impairment [None]
